FAERS Safety Report 7129988-5 (Version None)
Quarter: 2010Q4

REPORT INFORMATION
  Report Type: 
  Country: None (occurrence: None)
  Receive Date: 20101201
  Receipt Date: 20101122
  Transmission Date: 20110411
  Serious: Yes (Hospitalization)
  Sender: FDA-Public Use
  Company Number: US-BIOGENIDEC-2010BI039362

PATIENT
  Age: 59 Year
  Sex: Male

DRUGS (1)
  1. AVONEX [Suspect]
     Indication: MULTIPLE SCLEROSIS
     Route: 030
     Dates: start: 19990715

REACTIONS (7)
  - CYSTITIS [None]
  - ESCHERICHIA INFECTION [None]
  - GAIT DISTURBANCE [None]
  - PYREXIA [None]
  - URINARY RETENTION [None]
  - UROSEPSIS [None]
  - WHITE BLOOD CELL COUNT DECREASED [None]
